FAERS Safety Report 5847074-9 (Version None)
Quarter: 2008Q3

REPORT INFORMATION
  Report Type: 
  Country: None (occurrence: None)
  Receive Date: 20080815
  Receipt Date: 20080805
  Transmission Date: 20090109
  Serious: Yes (Other)
  Sender: FDA-Public Use
  Company Number: CA-PFIZER INC-2008066675

PATIENT
  Age: 32 Year
  Sex: Female

DRUGS (1)
  1. CHANTIX [Suspect]
     Route: 048
     Dates: start: 20080101, end: 20080101

REACTIONS (7)
  - ACTIVITIES OF DAILY LIVING IMPAIRED [None]
  - ANXIETY [None]
  - CATATONIA [None]
  - DEPRESSION [None]
  - ILL-DEFINED DISORDER [None]
  - INSOMNIA [None]
  - SUICIDAL BEHAVIOUR [None]
